FAERS Safety Report 16525838 (Version 1)
Quarter: 2019Q3

REPORT INFORMATION
  Report Type: Other
  Country: DE (occurrence: DE)
  Receive Date: 20190703
  Receipt Date: 20190703
  Transmission Date: 20191004
  Serious: Yes (Hospitalization)
  Sender: FDA-Public Use
  Company Number: DE-DENTSPLY-2019SCDP000372

PATIENT
  Age: 26 Year
  Sex: Female

DRUGS (2)
  1. MEPIVACAINE HCL [Suspect]
     Active Substance: MEPIVACAINE HYDROCHLORIDE
     Indication: VARICOSE VEIN OPERATION
     Dosage: 50 ML IN 500 ML NACL
     Dates: start: 20190528
  2. MEPIVACAINE HCL [Suspect]
     Active Substance: MEPIVACAINE HYDROCHLORIDE
     Indication: ANAESTHESIA

REACTIONS (7)
  - Somnolence [Unknown]
  - Speech disorder [Unknown]
  - Product quality issue [Unknown]
  - Paraesthesia [Unknown]
  - Tremor [Unknown]
  - Paraesthesia oral [Unknown]
  - Visual impairment [Unknown]

NARRATIVE: CASE EVENT DATE: 20190528
